FAERS Safety Report 7582595-2 (Version None)
Quarter: 2011Q2

REPORT INFORMATION
  Report Type: 
  Country: None (occurrence: None)
  Receive Date: 20110630
  Receipt Date: 20110624
  Transmission Date: 20111010
  Serious: No
  Sender: FDA-Public Use
  Company Number: US-PFIZER INC-2011105054

PATIENT
  Sex: Male
  Weight: 90.7 kg

DRUGS (2)
  1. LYRICA [Suspect]
     Indication: PROCEDURAL PAIN
  2. LYRICA [Suspect]
     Indication: HYPOAESTHESIA
     Dosage: UNK
     Dates: start: 20110414, end: 20110415

REACTIONS (10)
  - CONSTIPATION [None]
  - DISTURBANCE IN ATTENTION [None]
  - VISION BLURRED [None]
  - DIZZINESS [None]
  - SEXUAL DYSFUNCTION [None]
  - FLATULENCE [None]
  - HEADACHE [None]
  - SOMNOLENCE [None]
  - DRY MOUTH [None]
  - ABDOMINAL PAIN UPPER [None]
